FAERS Safety Report 11611632 (Version 2)
Quarter: 2015Q4

REPORT INFORMATION
  Report Type: Spontaneous
  Country: US (occurrence: US)
  Receive Date: 20151008
  Receipt Date: 20151015
  Transmission Date: 20160304
  Serious: Yes (Death)
  Sender: FDA-Public Use
  Company Number: CHPA2015US011847

PATIENT
  Age: 87 Year
  Sex: Female

DRUGS (1)
  1. KERI ADVANCED [Suspect]
     Active Substance: LANOLIN\MINERAL OIL
     Indication: DRY SKIN PROPHYLAXIS
     Dosage: UNK
     Route: 061
     Dates: start: 2013

REACTIONS (1)
  - Brain cancer metastatic [Fatal]
